FAERS Safety Report 5811378-6 (Version None)
Quarter: 2008Q3

REPORT INFORMATION
  Report Type: 
  Country: None (occurrence: None)
  Receive Date: 20080716
  Receipt Date: 20080710
  Transmission Date: 20090109
  Serious: Yes (Hospitalization)
  Sender: FDA-Public Use
  Company Number: FR-AVENTIS-200812644FR

PATIENT
  Age: 83 Year
  Sex: Male

DRUGS (10)
  1. TRIATEC                            /00885601/ [Suspect]
     Route: 048
     Dates: start: 20060401, end: 20080417
  2. TRIATEC                            /00885601/ [Suspect]
     Route: 048
     Dates: start: 20080420
  3. LASIX [Suspect]
     Route: 048
     Dates: start: 20060401, end: 20080417
  4. ALDACTONE [Suspect]
     Route: 048
     Dates: start: 20060401, end: 20080416
  5. MEDIATENSYL                        /00631801/ [Concomitant]
     Route: 048
     Dates: start: 20060101
  6. BETA ADALATE [Concomitant]
     Route: 048
     Dates: start: 20060101
  7. RILMENIDINE [Concomitant]
     Route: 048
     Dates: start: 20060101
  8. PRAVASTATIN [Concomitant]
     Route: 048
     Dates: start: 20060101
  9. SINTROM [Concomitant]
     Indication: ANTICOAGULANT THERAPY
     Route: 048
     Dates: start: 20060101
  10. AMARYL [Concomitant]
     Route: 048
     Dates: start: 20060101

REACTIONS (1)
  - RENAL FAILURE ACUTE [None]
